FAERS Safety Report 5948706-7 (Version None)
Quarter: 2008Q4

REPORT INFORMATION
  Report Type: 
  Country: None (occurrence: None)
  Receive Date: 20081111
  Receipt Date: 20081106
  Transmission Date: 20090506
  Serious: Yes (Life-Threatening, Hospitalization, Other)
  Sender: FDA-Public Use
  Company Number: IE-JNJFOC-20080806209

PATIENT
  Age: 45 Year
  Sex: Female

DRUGS (5)
  1. DAKTARIN ORAL GEL [Suspect]
     Route: 048
  2. DAKTARIN ORAL GEL [Suspect]
     Indication: ORAL CANDIDIASIS
     Route: 048
  3. WARFARIN SODIUM [Interacting]
     Indication: DRUG USE FOR UNKNOWN INDICATION
     Route: 065
  4. LAMICTAL [Concomitant]
  5. DERMOVATE [Concomitant]
     Route: 065

REACTIONS (5)
  - DRUG INTERACTION [None]
  - HAEMORRHAGE [None]
  - HEPATIC HAEMORRHAGE [None]
  - MOUTH HAEMORRHAGE [None]
  - RENAL HAEMORRHAGE [None]
